FAERS Safety Report 25358357 (Version 2)
Quarter: 2025Q3

REPORT INFORMATION
  Report Type: Report from Study
  Country: US (occurrence: US)
  Receive Date: 20250526
  Receipt Date: 20250703
  Transmission Date: 20251021
  Serious: No
  Sender: MALLINCKRODT
  Company Number: US-MALLINCKRODT-MNK202503061

PATIENT
  Sex: Female

DRUGS (3)
  1. CORTICOTROPIN [Suspect]
     Active Substance: CORTICOTROPIN
     Indication: Rheumatoid arthritis
     Route: 058
     Dates: start: 202406
  2. CORTICOTROPIN [Suspect]
     Active Substance: CORTICOTROPIN
     Indication: Rheumatoid arthritis
  3. COSENTYX [Concomitant]
     Active Substance: SECUKINUMAB

REACTIONS (4)
  - Illness [Unknown]
  - Immune system disorder [Unknown]
  - Brain fog [Not Recovered/Not Resolved]
  - Pertussis [Recovering/Resolving]
